FAERS Safety Report 25638266 (Version 1)
Quarter: 2025Q3

REPORT INFORMATION
  Report Type: Spontaneous
  Country: US (occurrence: None)
  Receive Date: 20250801
  Receipt Date: 20250801
  Transmission Date: 20251020
  Serious: Yes (Other)
  Sender: FDA-CTU
  Company Number: None

PATIENT
  Age: 64 Year
  Sex: Male

DRUGS (1)
  1. CABENUVA [Suspect]
     Active Substance: CABOTEGRAVIR\RILPIVIRINE
     Indication: Prophylaxis against HIV infection
     Dates: start: 20240806

REACTIONS (3)
  - Dyspnoea [None]
  - Muscle spasms [None]
  - Gait disturbance [None]

NARRATIVE: CASE EVENT DATE: 20250801
